FAERS Safety Report 4390524-8 (Version None)
Quarter: 2004Q2

REPORT INFORMATION
  Report Type: 
  Country: None (occurrence: None)
  Receive Date: 20040630
  Receipt Date: 20040618
  Transmission Date: 20050107
  Serious: Yes (Other)
  Sender: FDA-Public Use
  Company Number: 2004041962

PATIENT
  Age: 55 Year
  Sex: Female
  Weight: 58.9676 kg

DRUGS (7)
  1. LIPITOR [Suspect]
     Indication: BLOOD CHOLESTEROL INCREASED
     Dosage: 10 MG (10 MG, 1 IN 1D), ORAL
     Route: 048
  2. VITAMINS (ATORVASTATIN) [Concomitant]
  3. ONE-A-DAY (ASCORBIC ACID, CYANOCOBALAMIN, ERGOCALCIFEROL, NICOTINAMIDE [Concomitant]
  4. CALCIUM (CALCIUM) [Concomitant]
  5. ERGOCALCIFEROL (ERGOCALCIFEROL) [Concomitant]
  6. FOLIC ACID [Concomitant]
  7. ALL OTHER THERAPEUTIC PRODUCTS (ALL OTHER THERAPEUTIC PRODUCTS) [Concomitant]

REACTIONS (5)
  - BLOOD CHOLESTEROL INCREASED [None]
  - DISEASE RECURRENCE [None]
  - EYE DISORDER [None]
  - RETINAL NEOVASCULARISATION [None]
  - VISUAL ACUITY REDUCED [None]
